FAERS Safety Report 8837929 (Version 2)
Quarter: 2012Q4

REPORT INFORMATION
  Report Type: 
  Country: US (occurrence: US)
  Receive Date: 20121012
  Receipt Date: 20121121
  Transmission Date: 20130627
  Serious: Yes (Other)
  Sender: FDA-Public Use
  Company Number: US-BAYER-2012-105319

PATIENT
  Age: 22 Year
  Sex: Female
  Weight: 94.33 kg

DRUGS (1)
  1. MIRENA [Suspect]
     Indication: CONTRACEPTION
     Dosage: Daily dose 20 mcg/24hr
     Route: 015
     Dates: start: 20110511, end: 20121001

REACTIONS (5)
  - Genital haemorrhage [None]
  - Abdominal pain [None]
  - Device dislocation [None]
  - Device ineffective [None]
  - Pelvic pain [Not Recovered/Not Resolved]
